FAERS Safety Report 13457723 (Version 2)
Quarter: 2017Q2

REPORT INFORMATION
  Report Type: Spontaneous
  Country: BG (occurrence: BG)
  Receive Date: 20170419
  Receipt Date: 20170426
  Transmission Date: 20170830
  Serious: Yes (Hospitalization, Other)
  Sender: FDA-Public Use
  Company Number: BG-JNJFOC-20170417457

PATIENT
  Age: 79 Year
  Sex: Female

DRUGS (10)
  1. BISOPROLOL [Concomitant]
     Active Substance: BISOPROLOL
     Route: 065
  2. SPIRONOLACTON [Concomitant]
     Active Substance: SPIRONOLACTONE
     Route: 065
  3. XARELTO [Suspect]
     Active Substance: RIVAROXABAN
     Indication: ANTICOAGULANT THERAPY
     Route: 048
  4. ROSUVASTATIN. [Concomitant]
     Active Substance: ROSUVASTATIN
     Route: 065
  5. ZOFENOPRIL [Concomitant]
     Active Substance: ZOFENOPRIL
     Route: 065
  6. OMEPRAZOLE. [Concomitant]
     Active Substance: OMEPRAZOLE
     Route: 065
  7. RAMIPRIL. [Concomitant]
     Active Substance: RAMIPRIL
     Route: 065
  8. CORDARONE [Concomitant]
     Active Substance: AMIODARONE HYDROCHLORIDE
     Route: 065
  9. TORASEMID [Concomitant]
     Active Substance: TORSEMIDE
     Route: 065
  10. XARELTO [Suspect]
     Active Substance: RIVAROXABAN
     Indication: ATRIAL FIBRILLATION
     Route: 048

REACTIONS (2)
  - Atrial fibrillation [Unknown]
  - Cardiac failure [Unknown]

NARRATIVE: CASE EVENT DATE: 2016
